FAERS Safety Report 4330926-9 (Version None)
Quarter: 2004Q1

REPORT INFORMATION
  Report Type: 
  Country: None (occurrence: None)
  Receive Date: 20040329
  Receipt Date: 20040322
  Transmission Date: 20041129
  Serious: Yes (Hospitalization)
  Sender: FDA-Public Use
  Company Number: US-JNJFOC-20040305029

PATIENT
  Age: 51 Year
  Sex: Female

DRUGS (7)
  1. DURAGESIC [Suspect]
     Indication: PAIN
     Dosage: 75 UG/HR, TRANSDERMAL
     Route: 062
     Dates: start: 20030101
  2. ADVIL [Concomitant]
  3. INSULIN [Concomitant]
  4. SINGULAIR [Concomitant]
  5. DIAMOX [Concomitant]
  6. K-DUR 10 [Concomitant]
  7. TRAZODONE HCL [Concomitant]

REACTIONS (3)
  - HEADACHE [None]
  - NAUSEA [None]
  - SOMNOLENCE [None]
